FAERS Safety Report 8170730-7 (Version None)
Quarter: 2012Q1

REPORT INFORMATION
  Report Type: 
  Country: None (occurrence: None)
  Receive Date: 20120228
  Receipt Date: 20120213
  Transmission Date: 20120608
  Serious: Yes (Other)
  Sender: FDA-Public Use
  Company Number: NO-ROCHE-1042517

PATIENT

DRUGS (2)
  1. HEPARIN [Concomitant]
     Indication: DEEP VEIN THROMBOSIS
     Route: 042
  2. ALTEPLASE [Suspect]
     Indication: DEEP VEIN THROMBOSIS
     Dosage: 20 MG IN 500 ML 0.9% NACL INFUSED AT A RATE OF 0.01 MG/KG/H WITH A MAXIMUM DOSE OF 20 MG/24 HR
     Route: 042

REACTIONS (1)
  - PUNCTURE SITE INFECTION [None]
